FAERS Safety Report 18272855 (Version 1)
Quarter: 2020Q3

REPORT INFORMATION
  Report Type: Report from Study
  Country: US (occurrence: US)
  Receive Date: 20200916
  Receipt Date: 20200916
  Transmission Date: 20201103
  Serious: Yes (Other)
  Sender: FDA-Public Use
  Company Number: US-JNJFOC-20200909718

PATIENT

DRUGS (1)
  1. TOPIRAMATE. [Suspect]
     Active Substance: TOPIRAMATE
     Indication: MIGRAINE PROPHYLAXIS
     Route: 065

REACTIONS (8)
  - Aphasia [Unknown]
  - Fatigue [Unknown]
  - Hallucination, visual [Unknown]
  - Migraine [Unknown]
  - Vaginal haemorrhage [Unknown]
  - Abdominal discomfort [Unknown]
  - Paraesthesia [Unknown]
  - Feeling abnormal [Unknown]
